FAERS Safety Report 8898785 (Version 1)
Quarter: 2012Q4

REPORT INFORMATION
  Report Type: Report from Study
  Country: BR (occurrence: BR)
  Receive Date: 20121109
  Receipt Date: 20121109
  Transmission Date: 20130627
  Serious: Yes (Hospitalization, Disabling, Other)
  Sender: FDA-Public Use
  Company Number: BR-ABBOTT-10P-020-0681556-00

PATIENT
  Sex: Male

DRUGS (1)
  1. HUMIRA 40 MG/ 0.8 ML PRE-FILLED SYRINGE [Suspect]
     Indication: CROHN^S DISEASE
     Dates: start: 201004

REACTIONS (12)
  - Condition aggravated [Unknown]
  - Fall [Unknown]
  - Hip fracture [Not Recovered/Not Resolved]
  - Femur fracture [Not Recovered/Not Resolved]
  - Osteomyelitis [Recovering/Resolving]
  - Arthralgia [Unknown]
  - Back pain [Unknown]
  - Pain in extremity [Unknown]
  - Fatigue [Unknown]
  - Back pain [Unknown]
  - Activities of daily living impaired [Unknown]
  - Impaired work ability [Unknown]
